FAERS Safety Report 12447790 (Version 1)
Quarter: 2016Q2

REPORT INFORMATION
  Report Type: Spontaneous
  Country: US (occurrence: US)
  Receive Date: 20160608
  Receipt Date: 20160608
  Transmission Date: 20160815
  Serious: No
  Sender: FDA-Public Use
  Company Number: US-SA-2016SA095718

PATIENT
  Age: 54 Year
  Sex: Male

DRUGS (2)
  1. SOLOSTAR [Concomitant]
     Active Substance: DEVICE
     Indication: TYPE 1 DIABETES MELLITUS
     Dates: start: 201509
  2. TOUJEO [Suspect]
     Active Substance: INSULIN GLARGINE
     Indication: TYPE 1 DIABETES MELLITUS
     Dosage: DOSE:40 UNIT(S)
     Route: 065
     Dates: start: 201509

REACTIONS (2)
  - Blood glucose increased [Recovered/Resolved]
  - Hypoglycaemia [Unknown]

NARRATIVE: CASE EVENT DATE: 20160512
